FAERS Safety Report 4595360-5 (Version None)
Quarter: 2005Q1

REPORT INFORMATION
  Report Type: 
  Country: None (occurrence: None)
  Receive Date: 20050223
  Receipt Date: 20050210
  Transmission Date: 20050727
  Serious: Yes (Hospitalization)
  Sender: FDA-Public Use
  Company Number: 2005CG00317

PATIENT
  Age: 79 Year
  Sex: Male

DRUGS (7)
  1. NEXIUM [Suspect]
     Dosage: 1 DF DAILY PO
     Route: 048
     Dates: end: 20050119
  2. NEXIUM [Suspect]
     Dosage: 2 DF DAILY PO
     Route: 047
     Dates: start: 20050120
  3. KARDEGIC [Suspect]
     Dosage: 75 MG DAILY PO
     Route: 048
  4. AMARYL [Suspect]
     Dosage: 3 MG DAILY PO
     Route: 048
  5. CARDENSIEL [Suspect]
     Dosage: 1 DF DAILY PO
     Route: 048
  6. ZOCOR [Suspect]
  7. LASILIX [Suspect]

REACTIONS (1)
  - DUODENAL ULCER [None]
